FAERS Safety Report 9188960 (Version 3)
Quarter: 2013Q2

REPORT INFORMATION
  Report Type: Spontaneous
  Country: US (occurrence: US)
  Receive Date: 20130326
  Receipt Date: 20130417
  Transmission Date: 20140414
  Serious: Yes (Disabling)
  Sender: FDA-Public Use
  Company Number: US-009507513-1303USA010941

PATIENT
  Age: 19 Year
  Sex: Female
  Weight: 42.63 kg

DRUGS (2)
  1. IMPLANON [Suspect]
     Indication: CONTRACEPTION
     Dosage: 1 ROD 3 YEARS
     Route: 059
     Dates: start: 20110421
  2. TRAMADOL HYDROCHLORIDE [Concomitant]

REACTIONS (8)
  - Rash macular [Not Recovered/Not Resolved]
  - Weight decreased [Not Recovered/Not Resolved]
  - Myalgia [Not Recovered/Not Resolved]
  - Device dislocation [Unknown]
  - Fatigue [Unknown]
  - Asthenia [Unknown]
  - Pruritus [Unknown]
  - Skin discolouration [Unknown]
